FAERS Safety Report 17001817 (Version 2)
Quarter: 2019Q4

REPORT INFORMATION
  Report Type: Spontaneous
  Country: US (occurrence: US)
  Receive Date: 20191106
  Receipt Date: 20191118
  Transmission Date: 20200122
  Serious: No
  Sender: FDA-Public Use
  Company Number: US-PFIZER INC-2019476656

PATIENT
  Age: 69 Year
  Sex: Female

DRUGS (1)
  1. IBRANCE [Suspect]
     Active Substance: PALBOCICLIB
     Dosage: 125 MG, CYCLIC (TAKE 1 CAPSULE DAILY. TAKE 21 DAYS THEN REST FOR 7 DAYS)
     Route: 048
     Dates: start: 20190918

REACTIONS (2)
  - Oedema peripheral [Unknown]
  - Platelet count decreased [Unknown]
